FAERS Safety Report 6292204-0 (Version None)
Quarter: 2009Q3

REPORT INFORMATION
  Report Type: 
  Country: None (occurrence: None)
  Receive Date: 20090731
  Receipt Date: 20090720
  Transmission Date: 20100115
  Serious: Yes (Other)
  Sender: FDA-Public Use
  Company Number: PHHY2009DE30006

PATIENT
  Sex: Female

DRUGS (3)
  1. ESTRADERM [Suspect]
     Indication: OSTEOPOROSIS PROPHYLAXIS
     Dosage: UNK
     Route: 062
     Dates: start: 20070101
  2. VACCINES [Suspect]
     Dosage: UNK
     Dates: start: 20081201, end: 20081201
  3. ALENDRONIC ACID [Concomitant]
     Dosage: UNK
     Dates: start: 20081201

REACTIONS (6)
  - ARRHYTHMIA [None]
  - HEART RATE INCREASED [None]
  - HYPERSENSITIVITY [None]
  - OEDEMA MOUTH [None]
  - SYNCOPE [None]
  - TINNITUS [None]
